FAERS Safety Report 22392693 (Version 1)
Quarter: 2023Q2

REPORT INFORMATION
  Report Type: Spontaneous
  Country: US (occurrence: None)
  Receive Date: 20230531
  Receipt Date: 20230531
  Transmission Date: 20230721
  Serious: Yes (Death)
  Sender: FDA-Public Use
  Company Number: None

PATIENT
  Sex: Male

DRUGS (12)
  1. ARANESP [Suspect]
     Active Substance: DARBEPOETIN ALFA
     Dosage: 1 SYRINGE Q3 WEEKS SQ
     Route: 058
  2. POLYETHYLENE GLYCOL [Concomitant]
     Active Substance: POLYETHYLENE GLYCOL
  3. ESOMEPRAZOLE [Concomitant]
     Active Substance: ESOMEPRAZOLE
  4. DOCUSATE [Concomitant]
     Active Substance: DOCUSATE
  5. METOPROLOL [Concomitant]
     Active Substance: METOPROLOL
  6. HYDROCORTISONE [Concomitant]
     Active Substance: HYDROCORTISONE
  7. LACTULOSE [Concomitant]
     Active Substance: LACTULOSE
  8. BICALUTAMIDE [Concomitant]
     Active Substance: BICALUTAMIDE
  9. MORPHINE [Concomitant]
     Active Substance: MORPHINE
  10. SENNA [Concomitant]
     Active Substance: SENNA LEAF\SENNOSIDES\SENNOSIDES A AND B
  11. DRONABINOL [Concomitant]
     Active Substance: DRONABINOL
  12. OXYCODONE [Concomitant]
     Active Substance: OXYCODONE

REACTIONS (1)
  - Death [None]
